FAERS Safety Report 23466879 (Version 1)
Quarter: 2024Q1

REPORT INFORMATION
  Report Type: Spontaneous
  Country: RU (occurrence: RU)
  Receive Date: 20240201
  Receipt Date: 20240201
  Transmission Date: 20240409
  Serious: Yes (Life-Threatening)
  Sender: FDA-Public Use
  Company Number: RU-ABBVIE-5619712

PATIENT
  Age: 17 Year
  Sex: Male
  Weight: 105 kg

DRUGS (10)
  1. SEVOFLURANE [Suspect]
     Active Substance: SEVOFLURANE
     Indication: General anaesthesia
     Route: 055
     Dates: start: 20230731, end: 20230731
  2. SEVOFLURANE [Suspect]
     Active Substance: SEVOFLURANE
     Indication: General anaesthesia
     Route: 055
     Dates: start: 20230731, end: 20230731
  3. ROCURONIUM [Concomitant]
     Active Substance: ROCURONIUM BROMIDE
     Indication: General anaesthesia
     Dosage: 0.3 MG/KG/HOUR
     Dates: start: 20230731, end: 20230731
  4. ROCURONIUM [Concomitant]
     Active Substance: ROCURONIUM BROMIDE
     Indication: General anaesthesia
     Dosage: 50 MG
     Dates: start: 20230731, end: 20230731
  5. FENTANYL [Suspect]
     Active Substance: FENTANYL\FENTANYL CITRATE
     Indication: General anaesthesia
     Dosage: 4,0 ML (200 MCG)
     Route: 065
     Dates: start: 20230731, end: 20230731
  6. FENTANYL [Suspect]
     Active Substance: FENTANYL\FENTANYL CITRATE
     Indication: General anaesthesia
     Dosage: 50 MCG PER HOUR
     Route: 065
     Dates: start: 20230731, end: 20230731
  7. DEXMEDETOMIDINE HYDROCHLORIDE [Suspect]
     Active Substance: DEXMEDETOMIDINE HYDROCHLORIDE
     Indication: Sedative therapy
     Dosage: 1 ML = 100 MCG
     Route: 065
     Dates: start: 20230731, end: 20230731
  8. DEXMEDETOMIDINE HYDROCHLORIDE [Suspect]
     Active Substance: DEXMEDETOMIDINE HYDROCHLORIDE
     Indication: Sedative therapy
     Dosage: 0,5 MCG/KG/HOUR
     Route: 065
     Dates: start: 20230731, end: 20230731
  9. MIDAZOLAM [Concomitant]
     Active Substance: MIDAZOLAM
     Indication: General anaesthesia
     Dosage: 6 ML = 30 MG
     Dates: start: 20230731, end: 20230731
  10. CEFOPERAZONE\SULBACTAM [Suspect]
     Active Substance: CEFOPERAZONE\SULBACTAM
     Indication: Antibiotic prophylaxis
     Route: 065
     Dates: start: 20230731, end: 20230731

REACTIONS (6)
  - Hypocapnia [Unknown]
  - Hypotension [Unknown]
  - Hypotonia [Unknown]
  - Cardiac arrest [Recovered/Resolved]
  - Oxygen saturation decreased [Unknown]
  - Hyperaemia [Unknown]

NARRATIVE: CASE EVENT DATE: 20230731
